FAERS Safety Report 21256719 (Version 3)
Quarter: 2022Q3

REPORT INFORMATION
  Report Type: Report from Study
  Country: US (occurrence: US)
  Receive Date: 20220826
  Receipt Date: 20220921
  Transmission Date: 20221026
  Serious: Yes (Hospitalization)
  Sender: FDA-Public Use
  Company Number: US-BRISTOL-MYERS SQUIBB COMPANY-2022-095314

PATIENT
  Age: 43 Year
  Sex: Female
  Weight: 60.7 kg

DRUGS (3)
  1. IPILIMUMAB [Suspect]
     Active Substance: IPILIMUMAB
     Indication: Chromophobe renal cell carcinoma
     Route: 042
     Dates: start: 20220517, end: 20220831
  2. NIVOLUMAB [Suspect]
     Active Substance: NIVOLUMAB
     Indication: Chromophobe renal cell carcinoma
     Route: 042
     Dates: start: 20220517, end: 20220831
  3. CABOZANTINIB [Suspect]
     Active Substance: CABOZANTINIB
     Indication: Chromophobe renal cell carcinoma
     Route: 065
     Dates: start: 20220517, end: 20220517

REACTIONS (2)
  - Dehydration [Recovered/Resolved]
  - Pyrexia [Unknown]

NARRATIVE: CASE EVENT DATE: 20220819
